FAERS Safety Report 5016125-6 (Version None)
Quarter: 2006Q2

REPORT INFORMATION
  Report Type: 
  Country: None (occurrence: None)
  Receive Date: 20060601
  Receipt Date: 20060526
  Transmission Date: 20061013
  Serious: Yes (Other)
  Sender: FDA-Public Use
  Company Number: US-BOEHRINGER INGELHEIM PHARMACEUTICALS, INC.-2006-DE-02697GD

PATIENT
  Age: 68 Year
  Sex: Male

DRUGS (12)
  1. SALBUTAMOL [Suspect]
     Indication: CHRONIC OBSTRUCTIVE PULMONARY DISEASE
     Route: 055
  2. SALBUTAMOL [Suspect]
     Indication: CONDITION AGGRAVATED
  3. IPRATROPIUM BROMIDE [Suspect]
     Indication: CHRONIC OBSTRUCTIVE PULMONARY DISEASE
     Route: 055
  4. IPRATROPIUM BROMIDE [Suspect]
     Indication: CONDITION AGGRAVATED
  5. MORPHINE [Suspect]
     Indication: CHRONIC OBSTRUCTIVE PULMONARY DISEASE
     Dosage: 3 MG - 8 MG
  6. MORPHINE [Suspect]
     Indication: CONDITION AGGRAVATED
  7. DEXAMETHASONE TAB [Suspect]
     Indication: CHRONIC OBSTRUCTIVE PULMONARY DISEASE
     Route: 042
  8. DEXAMETHASONE TAB [Suspect]
     Indication: CONDITION AGGRAVATED
  9. FLUTICASONE PROPIONATE [Suspect]
     Indication: CHRONIC OBSTRUCTIVE PULMONARY DISEASE
  10. FLUTICASONE PROPIONATE [Suspect]
     Indication: CONDITION AGGRAVATED
  11. ANTIBIOTICS [Suspect]
     Indication: CHRONIC OBSTRUCTIVE PULMONARY DISEASE
  12. ANTIBIOTICS [Suspect]
     Indication: CONDITION AGGRAVATED

REACTIONS (4)
  - DRUG INEFFECTIVE [None]
  - HYPERCAPNIA [None]
  - OXYGEN SATURATION DECREASED [None]
  - PSEUDOMONAS INFECTION [None]
